FAERS Safety Report 21390903 (Version 2)
Quarter: 2022Q4

REPORT INFORMATION
  Report Type: Spontaneous
  Country: DE (occurrence: DE)
  Receive Date: 20220929
  Receipt Date: 20221014
  Transmission Date: 20230113
  Serious: Yes (Hospitalization)
  Sender: FDA-Public Use
  Company Number: None

PATIENT
  Age: 67 Year
  Sex: Male
  Weight: 98 kg

DRUGS (10)
  1. SERTRALINE [Interacting]
     Active Substance: SERTRALINE HYDROCHLORIDE
     Indication: Product used for unknown indication
     Dosage: 100 MG, 1-0-0-0,
     Route: 048
  2. GABAPENTIN [Suspect]
     Active Substance: GABAPENTIN
     Indication: Product used for unknown indication
     Dosage: 100 MG, 1-1-2-0
     Route: 048
  3. PROTHIPENDYL HYDROCHLORIDE [Interacting]
     Active Substance: PROTHIPENDYL HYDROCHLORIDE
     Indication: Product used for unknown indication
     Dosage: 40 MG, 0-0-1-0,
     Route: 048
  4. cyanocobalamin (Vitamin B12) [Concomitant]
     Indication: Product used for unknown indication
     Dosage: UNKNOWN
     Route: 065
  5. Metobeta 50 [Concomitant]
     Indication: Product used for unknown indication
     Dosage: 50 MG, 1-0-1-0,
     Route: 048
  6. MIRTAZAPINE [Concomitant]
     Active Substance: MIRTAZAPINE
     Indication: Product used for unknown indication
     Dosage: 30 MG, 0-0-1-0,
     Route: 048
  7. PANTOPRAZOLE [Concomitant]
     Active Substance: PANTOPRAZOLE
     Indication: Product used for unknown indication
     Dosage: 20 MG, 1-0-0-0,
     Route: 048
  8. PHENPROCOUMON [Concomitant]
     Active Substance: PHENPROCOUMON
     Indication: Product used for unknown indication
     Dosage: 3 MG, AS PER INR
     Route: 048
  9. SIMVASTATIN [Concomitant]
     Active Substance: SIMVASTATIN
     Indication: Product used for unknown indication
     Dosage: 40 MG, 0-0-1-0,
     Route: 048
  10. TORSEMIDE [Concomitant]
     Active Substance: TORSEMIDE
     Indication: Product used for unknown indication
     Dosage: 10 MG, 0-0-1-0,
     Route: 048

REACTIONS (3)
  - Product monitoring error [Unknown]
  - Gait disturbance [Unknown]
  - Labelled drug-drug interaction medication error [Unknown]

NARRATIVE: CASE EVENT DATE: 20210619
